FAERS Safety Report 11584513 (Version 1)
Quarter: 2015Q4

REPORT INFORMATION
  Report Type: Spontaneous
  Country: IT (occurrence: IT)
  Receive Date: 20151001
  Receipt Date: 20151001
  Transmission Date: 20160304
  Serious: Yes (Death, Other)
  Sender: FDA-Public Use
  Company Number: IT-CELGENE-083-50794-14033516

PATIENT

DRUGS (1)
  1. VIDAZA [Suspect]
     Active Substance: AZACITIDINE
     Indication: ACUTE MYELOID LEUKAEMIA
     Dosage: 18.75 MILLIGRAM/SQ. METER
     Route: 058

REACTIONS (11)
  - Cerebral haemorrhage [Fatal]
  - Pneumonia [Fatal]
  - Pancytopenia [Unknown]
  - Treatment failure [Unknown]
  - Septic shock [Fatal]
  - Thrombocytopenia [Unknown]
  - Bone marrow failure [Unknown]
  - Injection site irritation [Unknown]
  - Febrile neutropenia [Unknown]
  - Neutropenia [Unknown]
  - Fungal infection [Unknown]
